FAERS Safety Report 18126952 (Version 1)
Quarter: 2020Q3

REPORT INFORMATION
  Report Type: Spontaneous
  Country: AU (occurrence: AU)
  Receive Date: 20200810
  Receipt Date: 20200810
  Transmission Date: 20201103
  Serious: Yes (Other)
  Sender: FDA-Public Use
  Company Number: AU-BAXTER-2020BAX015098

PATIENT
  Age: 72 Year
  Sex: Female

DRUGS (3)
  1. PACLITAXEL. [Suspect]
     Active Substance: PACLITAXEL
     Indication: BREAST CANCER
     Dosage: FIRST DOSE
     Route: 065
  2. PACLITAXEL. [Suspect]
     Active Substance: PACLITAXEL
     Dosage: VIA PHASEAL ADAPTER
     Route: 042
     Dates: start: 20200712, end: 20200714
  3. SODIUM CHLORIDE (VIAFLO) 500ML [Suspect]
     Active Substance: SODIUM CHLORIDE
     Indication: MEDICATION DILUTION
     Dosage: VIA PHASEAL ADAPTER
     Route: 042
     Dates: start: 20200712, end: 20200714

REACTIONS (7)
  - Nausea [Unknown]
  - Blood pressure fluctuation [Unknown]
  - Loss of consciousness [Recovered/Resolved]
  - Blood pressure decreased [Recovered/Resolved]
  - Chest discomfort [Unknown]
  - Heart rate increased [Recovered/Resolved]
  - Back pain [Unknown]

NARRATIVE: CASE EVENT DATE: 20200712
